FAERS Safety Report 4743598-6 (Version None)
Quarter: 2005Q3

REPORT INFORMATION
  Report Type: 
  Country: None (occurrence: None)
  Receive Date: 20050810
  Receipt Date: 20050810
  Transmission Date: 20060218
  Serious: Yes (Hospitalization)
  Sender: FDA-Public Use
  Company Number: None

PATIENT
  Age: 54 Year
  Sex: Female
  Weight: 58 kg

DRUGS (5)
  1. CLONAZEPAM [Suspect]
     Indication: ANXIETY
     Dosage: 1 PO BID AND 4 QHS RPN
     Route: 048
  2. CLONAZEPAM [Suspect]
     Indication: INSOMNIA
     Dosage: 1 PO BID AND 4 QHS RPN
     Route: 048
  3. HYDROCHLOROTHIAZIDE [Concomitant]
  4. LISINOPRIL [Concomitant]
  5. MOTRIN [Concomitant]

REACTIONS (9)
  - DIZZINESS [None]
  - FALL [None]
  - FRACTURE [None]
  - HAEMORRHAGE [None]
  - HYPOKALAEMIA [None]
  - ORAL INTAKE REDUCED [None]
  - SOMNOLENCE [None]
  - SYNCOPE [None]
  - TREATMENT NONCOMPLIANCE [None]
